FAERS Safety Report 8073920-7 (Version None)
Quarter: 2012Q1

REPORT INFORMATION
  Report Type: 
  Country: None (occurrence: None)
  Receive Date: 20120126
  Receipt Date: 20120112
  Transmission Date: 20120608
  Serious: Yes (Other)
  Sender: FDA-Public Use
  Company Number: CA-JNJFOC-20120111168

PATIENT
  Sex: Female
  Weight: 64 kg

DRUGS (1)
  1. REMICADE [Suspect]
     Indication: AUTOIMMUNE ARTHRITIS
     Route: 042
     Dates: start: 19990101

REACTIONS (2)
  - PULMONARY MYCOSIS [None]
  - ARTHRITIS [None]
